FAERS Safety Report 4299220-9 (Version None)
Quarter: 2004Q1

REPORT INFORMATION
  Report Type: 
  Country: None (occurrence: None)
  Receive Date: 20040217
  Receipt Date: 20040203
  Transmission Date: 20041129
  Serious: Yes (Life-Threatening)
  Sender: FDA-Public Use
  Company Number: K200400142

PATIENT
  Sex: Female
  Weight: 45.4 kg

DRUGS (1)
  1. THROMBOIN-JMI (THROMBIN) UNKNOWN, 20,000U [Suspect]
     Indication: CARDIAC PACEMAKER INSERTION
     Dosage: 20000 U,SINGLE, TOPICAL
     Route: 061
     Dates: start: 20031101, end: 20031101

REACTIONS (5)
  - HYPOTENSION [None]
  - IMPLANT SITE REACTION [None]
  - RESPIRATORY ARREST [None]
  - SOFT TISSUE INFLAMMATION [None]
  - SWELLING [None]
